FAERS Safety Report 5692824-8 (Version None)
Quarter: 2008Q2

REPORT INFORMATION
  Report Type: 
  Country: None (occurrence: None)
  Receive Date: 20080402
  Receipt Date: 20080324
  Transmission Date: 20081010
  Serious: Yes (Death)
  Sender: FDA-Public Use
  Company Number: US-BAXTER-2008BH002734

PATIENT
  Age: 9 Year
  Sex: Female

DRUGS (3)
  1. SUPRANE [Suspect]
     Indication: GENERAL ANAESTHESIA
     Route: 055
  2. FORANE [Suspect]
     Indication: GENERAL ANAESTHESIA
     Dosage: DOSE UNIT:UNKNOWN
     Route: 065
  3. METHOHEXITAL [Suspect]
     Indication: GENERAL ANAESTHESIA

REACTIONS (3)
  - BRADYCARDIA [None]
  - HYPOXIA [None]
  - HYPOXIC ENCEPHALOPATHY [None]
